FAERS Safety Report 6440477-3 (Version None)
Quarter: 2009Q4

REPORT INFORMATION
  Report Type: 
  Country: None (occurrence: None)
  Receive Date: 20091113
  Receipt Date: 20091102
  Transmission Date: 20100525
  Serious: Yes (Hospitalization)
  Sender: FDA-Public Use
  Company Number: US-ELI_LILLY_AND_COMPANY-US200911001076

PATIENT
  Age: 97 Year
  Sex: Male

DRUGS (2)
  1. CYMBALTA [Suspect]
     Dosage: 60 MG, UNKNOWN
     Route: 065
     Dates: start: 20091001
  2. ATIVAN [Concomitant]
     Indication: AGITATION
     Dosage: 0.5 MG, DAILY (1/D)
     Route: 048

REACTIONS (2)
  - AGGRESSION [None]
  - DELIRIUM [None]
